FAERS Safety Report 7589941-4 (Version None)
Quarter: 2011Q3

REPORT INFORMATION
  Report Type: 
  Country: None (occurrence: None)
  Receive Date: 20110705
  Receipt Date: 20110614
  Transmission Date: 20111222
  Serious: Yes (Other)
  Sender: FDA-Public Use
  Company Number: A0764982A

PATIENT
  Age: 48 Year
  Sex: Male
  Weight: 109.1 kg

DRUGS (7)
  1. TIMOLOL [Concomitant]
  2. AVANDIA [Suspect]
     Dosage: 8MG PER DAY
     Route: 048
     Dates: start: 20020101, end: 20070101
  3. INSULIN [Concomitant]
  4. AVALIDE [Concomitant]
  5. XALATAN [Concomitant]
  6. BEXTRA [Concomitant]
  7. METFORMIN HCL [Concomitant]

REACTIONS (3)
  - CEREBROVASCULAR ACCIDENT [None]
  - OEDEMA PERIPHERAL [None]
  - VISION BLURRED [None]
